FAERS Safety Report 15779513 (Version 1)
Quarter: 2019Q1

REPORT INFORMATION
  Report Type: Spontaneous
  Country: US (occurrence: US)
  Receive Date: 20190101
  Receipt Date: 20190101
  Transmission Date: 20190417
  Serious: Yes (Other)
  Sender: FDA-Public Use
  Company Number: US-AUROBINDO-AUR-APL-2018-033636

PATIENT
  Age: 135 Day
  Sex: Female

DRUGS (3)
  1. LUMACAFTOR [Suspect]
     Active Substance: LUMACAFTOR
     Indication: PRODUCT USED FOR UNKNOWN INDICATION
     Route: 063
  2. SULFAMETHOXAZOLE W/TRIMETHOPRIM [Suspect]
     Active Substance: SULFAMETHOXAZOLE\TRIMETHOPRIM
     Indication: PRODUCT USED FOR UNKNOWN INDICATION
     Dosage: UNK
     Route: 063
  3. LEVOFLOXACIN. [Suspect]
     Active Substance: LEVOFLOXACIN
     Indication: PRODUCT USED FOR UNKNOWN INDICATION
     Dosage: UNK ( ROUTE BREAST FEEDING)
     Route: 065

REACTIONS (4)
  - Maternal exposure during breast feeding [Unknown]
  - Hepatic enzyme increased [Recovered/Resolved]
  - Foetal exposure during pregnancy [Unknown]
  - Liver function test abnormal [Recovered/Resolved]
